FAERS Safety Report 9006743 (Version 1)
Quarter: 2013Q1

REPORT INFORMATION
  Report Type: Report from Study
  Country: US (occurrence: US)
  Receive Date: 20130110
  Receipt Date: 20130110
  Transmission Date: 20140127
  Serious: Yes (Hospitalization)
  Sender: FDA-Public Use
  Company Number: US-VERTEX PHARMACEUTICALS INC.-2013-000407

PATIENT
  Sex: Female
  Weight: 89 kg

DRUGS (3)
  1. VX-950 (TELAPREVIR) [Suspect]
     Indication: HEPATITIS C
     Dosage: 750 MG, TID
     Route: 048
     Dates: start: 20121126, end: 201212
  2. PEGASYS [Suspect]
     Indication: HEPATITIS C
     Dosage: 180 ?G, QW
     Route: 058
     Dates: start: 20121126, end: 201212
  3. RIBASPHERE [Concomitant]
     Indication: HEPATITIS C
     Dosage: 400 MG IN AM; 600 MG IN PM
     Route: 048
     Dates: start: 20121126, end: 201212

REACTIONS (1)
  - Pneumonia [Unknown]
